FAERS Safety Report 16958850 (Version 1)
Quarter: 2019Q4

REPORT INFORMATION
  Report Type: Spontaneous
  Country: FI (occurrence: FI)
  Receive Date: 20191024
  Receipt Date: 20191024
  Transmission Date: 20200122
  Serious: Yes (Other)
  Sender: FDA-Public Use
  Company Number: FI-JNJFOC-20191032088

PATIENT
  Age: 70 Year
  Sex: Female

DRUGS (1)
  1. RIVAROXABAN [Suspect]
     Active Substance: RIVAROXABAN
     Indication: ATRIAL FIBRILLATION
     Dosage: UNK MG
     Route: 048
     Dates: start: 20191004

REACTIONS (2)
  - Haemoglobin decreased [Unknown]
  - Rectal polyp [Unknown]

NARRATIVE: CASE EVENT DATE: 20191006
